FAERS Safety Report 5647214-0 (Version None)
Quarter: 2008Q1

REPORT INFORMATION
  Report Type: 
  Country: None (occurrence: None)
  Receive Date: 20080228
  Receipt Date: 20080228
  Transmission Date: 20080703
  Serious: No
  Sender: FDA-Public Use
  Company Number: None

PATIENT
  Age: 82 Year
  Sex: Male
  Weight: 97.8 kg

DRUGS (2)
  1. SULFAMETHOXAZOLE AND TRIMETHOPRIM [Suspect]
     Dosage: 800/160MG BID PO
     Route: 048
     Dates: start: 20080211, end: 20080219
  2. PERMETHRIN [Suspect]
     Dosage: SMALL AMT ONCE TOP
     Route: 061
     Dates: start: 20080211, end: 20080211

REACTIONS (6)
  - BURNING SENSATION [None]
  - NO THERAPEUTIC RESPONSE [None]
  - RASH ERYTHEMATOUS [None]
  - RASH PRURITIC [None]
  - SCAB [None]
  - URTICARIA [None]
